FAERS Safety Report 9799185 (Version 2)
Quarter: 2014Q1

REPORT INFORMATION
  Report Type: Spontaneous
  Country: US (occurrence: US)
  Receive Date: 20140106
  Receipt Date: 20140106
  Transmission Date: 20141002
  Serious: No
  Sender: FDA-Public Use
  Company Number: US-GILEAD-2010-0033855

PATIENT
  Age: 72 Year
  Sex: Female

DRUGS (13)
  1. LETAIRIS [Suspect]
     Indication: PULMONARY ARTERIAL HYPERTENSION
     Route: 048
     Dates: start: 20091112, end: 201010
  2. NORVASC [Concomitant]
  3. DOXAZOSIN [Concomitant]
  4. ASA [Concomitant]
  5. ADVAIR [Concomitant]
  6. AMBIEN [Concomitant]
  7. FISH OIL [Concomitant]
  8. CALCIUM [Concomitant]
  9. FERROUS SULFATE [Concomitant]
  10. MULTIVITAMIN [Concomitant]
  11. VIT C [Concomitant]
  12. VIT E [Concomitant]
  13. VIT D [Concomitant]

REACTIONS (3)
  - Renal failure [Unknown]
  - Oedema peripheral [Unknown]
  - Anaemia [Unknown]
